FAERS Safety Report 4325959-2 (Version None)
Quarter: 2004Q1

REPORT INFORMATION
  Report Type: 
  Country: None (occurrence: None)
  Receive Date: 20040329
  Receipt Date: 20040301
  Transmission Date: 20041129
  Serious: Yes (Hospitalization, Disabling, Other)
  Sender: FDA-Public Use
  Company Number: US-GLAXOSMITHKLINE-A0500639A

PATIENT
  Age: 58 Year
  Sex: Male

DRUGS (10)
  1. AVANDAMET [Suspect]
     Indication: DIABETES MELLITUS NON-INSULIN-DEPENDENT
     Route: 048
     Dates: start: 20040201
  2. DIGOXIN [Concomitant]
     Dosage: .125MG PER DAY
     Route: 048
  3. PLAVIX [Concomitant]
     Dosage: 75MG PER DAY
     Route: 048
  4. VASOTEC [Concomitant]
     Dosage: 10MG TWICE PER DAY
     Route: 048
  5. GLUCOTROL XL [Concomitant]
     Dosage: 10MG PER DAY
     Route: 048
  6. ZOCOR [Concomitant]
     Dosage: 80MG PER DAY
     Route: 048
  7. PROZAC [Concomitant]
     Dosage: 20MG PER DAY
     Route: 048
  8. LASIX [Concomitant]
     Dosage: 40MG PER DAY
     Route: 048
  9. POTASSIUM [Concomitant]
     Dosage: 20MEQ PER DAY
     Route: 048
  10. VIOXX [Concomitant]
     Dosage: 25MG PER DAY
     Route: 048

REACTIONS (2)
  - CONVULSION [None]
  - DYSPEPSIA [None]
